FAERS Safety Report 4867281-1 (Version None)
Quarter: 2005Q4

REPORT INFORMATION
  Report Type: 
  Country: None (occurrence: None)
  Receive Date: 20051228
  Receipt Date: 20051220
  Transmission Date: 20060501
  Serious: Yes (Other)
  Sender: FDA-Public Use
  Company Number: 2005UW19010

PATIENT
  Sex: Male

DRUGS (8)
  1. PRILOSEC [Suspect]
     Route: 048
  2. CELLCEPT [Suspect]
  3. GENGRAF [Suspect]
  4. WELLBUTRIN [Suspect]
  5. DIOVAN [Suspect]
  6. LIPITOR [Suspect]
  7. LUNESTA [Suspect]
  8. GLUCONATE SODIUM [Suspect]

REACTIONS (1)
  - BLINDNESS [None]
